FAERS Safety Report 21497762 (Version 1)
Quarter: 2022Q4

REPORT INFORMATION
  Report Type: Spontaneous
  Country: JP (occurrence: JP)
  Receive Date: 20221024
  Receipt Date: 20221024
  Transmission Date: 20230113
  Serious: Yes (Other)
  Sender: FDA-Public Use
  Company Number: JP-TAKEDA-2022TJP075759

PATIENT
  Age: 7 Decade
  Sex: Female

DRUGS (2)
  1. ROZEREM [Suspect]
     Active Substance: RAMELTEON
     Indication: Product used for unknown indication
     Dosage: UNK
     Route: 048
     Dates: start: 2019
  2. ROZEREM [Suspect]
     Active Substance: RAMELTEON
     Dosage: UNK
     Route: 048
     Dates: start: 2022, end: 2022

REACTIONS (4)
  - Atrial fibrillation [Recovering/Resolving]
  - Palpitations [Unknown]
  - Anxiety [Unknown]
  - Insomnia [Unknown]
